FAERS Safety Report 17764415 (Version 5)
Quarter: 2022Q4

REPORT INFORMATION
  Report Type: Spontaneous
  Country: US (occurrence: US)
  Receive Date: 20200511
  Receipt Date: 20221208
  Transmission Date: 20230113
  Serious: No
  Sender: FDA-Public Use
  Company Number: US-LUPIN PHARMACEUTICALS INC.-2020-01989

PATIENT

DRUGS (2)
  1. AZITHROMYCIN [Suspect]
     Active Substance: AZITHROMYCIN
     Indication: Pulmonary pain
     Dosage: 500 MILLIGRAM, BID
     Route: 048
     Dates: start: 20200320, end: 20200322
  2. AZITHROMYCIN [Suspect]
     Active Substance: AZITHROMYCIN
     Indication: COVID-19

REACTIONS (10)
  - Feeling abnormal [Recovering/Resolving]
  - Abdominal pain [Recovering/Resolving]
  - Diarrhoea [Recovered/Resolved]
  - Constipation [Recovering/Resolving]
  - Dizziness [Recovered/Resolved]
  - Dyspnoea [Unknown]
  - Hyperventilation [Recovered/Resolved]
  - Headache [Recovering/Resolving]
  - Pain [Recovering/Resolving]
  - Fatigue [Recovering/Resolving]

NARRATIVE: CASE EVENT DATE: 20200320
